FAERS Safety Report 26130538 (Version 1)
Quarter: 2025Q4

REPORT INFORMATION
  Report Type: Spontaneous
  Country: EU (occurrence: EU)
  Receive Date: 20251208
  Receipt Date: 20251208
  Transmission Date: 20260118
  Serious: Yes (Other)
  Sender: NOVARTIS
  Company Number: None

PATIENT
  Age: 14 Year
  Sex: Male
  Weight: 47.5 kg

DRUGS (1)
  1. MEKINIST [Suspect]
     Active Substance: TRAMETINIB DIMETHYL SULFOXIDE
     Indication: Astrocytoma, low grade
     Dosage: 1 MG, QD
     Route: 048
     Dates: start: 20240201, end: 20251113

REACTIONS (2)
  - Paronychia [Recovering/Resolving]
  - Bullous impetigo [Recovered/Resolved]

NARRATIVE: CASE EVENT DATE: 20240703
